FAERS Safety Report 7246009-4 (Version None)
Quarter: 2011Q1

REPORT INFORMATION
  Report Type: 
  Country: None (occurrence: None)
  Receive Date: 20110126
  Receipt Date: 20110126
  Transmission Date: 20110831
  Serious: Yes (Other)
  Sender: FDA-Public Use
  Company Number: IL-ABBOTT-11P-082-0696536-00

PATIENT
  Age: 27 Year
  Sex: Female
  Weight: 58 kg

DRUGS (3)
  1. PROGYNOVA [Concomitant]
     Indication: INFERTILITY FEMALE
  2. ENDOMETRIN [Concomitant]
     Indication: INFERTILITY FEMALE
  3. HUMIRA [Suspect]
     Indication: CROHN'S DISEASE
     Route: 058
     Dates: start: 20101012, end: 20101212

REACTIONS (1)
  - BLIGHTED OVUM [None]
